FAERS Safety Report 5108429-3 (Version None)
Quarter: 2006Q3

REPORT INFORMATION
  Report Type: 
  Country: None (occurrence: None)
  Receive Date: 20060915
  Receipt Date: 20060901
  Transmission Date: 20061208
  Serious: Yes (Hospitalization)
  Sender: FDA-Public Use
  Company Number: RENA-11903

PATIENT
  Age: 49 Year
  Sex: Female

DRUGS (1)
  1. RENAGEL [Suspect]
     Indication: HYPERPHOSPHATAEMIA
     Dosage: 7.2 G TID PO
     Route: 048
     Dates: start: 20010101

REACTIONS (8)
  - BLISTER [None]
  - CELLULITIS [None]
  - ERYTHEMA [None]
  - HYPERPHOSPHATAEMIA [None]
  - INCORRECT DOSE ADMINISTERED [None]
  - PRURITUS [None]
  - SKIN BURNING SENSATION [None]
  - TREATMENT NONCOMPLIANCE [None]
